FAERS Safety Report 5306783-0 (Version None)
Quarter: 2007Q2

REPORT INFORMATION
  Report Type: 
  Country: None (occurrence: None)
  Receive Date: 20070423
  Receipt Date: 20070423
  Transmission Date: 20071010
  Serious: Yes (Hospitalization)
  Sender: FDA-Public Use
  Company Number: None

PATIENT
  Age: 70 Year
  Sex: Male
  Weight: 101.9 kg

DRUGS (2)
  1. FUROSEMIDE [Suspect]
     Dosage: 40MG BID PO
     Route: 048
  2. LISINOPRIL [Suspect]
     Dosage: 10MG QD PO
     Route: 048

REACTIONS (9)
  - HYPERKALAEMIA [None]
  - HYPOTENSION [None]
  - LABORATORY TEST ABNORMAL [None]
  - NEUTROPENIA [None]
  - POLYURIA [None]
  - PRODUCTIVE COUGH [None]
  - PYREXIA [None]
  - RENAL FAILURE ACUTE [None]
  - THROMBOCYTOPENIA [None]
